FAERS Safety Report 13686095 (Version 1)
Quarter: 2017Q2

REPORT INFORMATION
  Report Type: Spontaneous
  Country: US (occurrence: US)
  Receive Date: 20170623
  Receipt Date: 20170623
  Transmission Date: 20170830
  Serious: No
  Sender: FDA-Public Use
  Company Number: US-ROCHE-1077108

PATIENT
  Sex: Female
  Weight: 94 kg

DRUGS (1)
  1. CELLCEPT [Suspect]
     Active Substance: MYCOPHENOLATE MOFETIL\MYCOPHENOLATE MOFETIL HYDROCHLORIDE
     Indication: LUNG TRANSPLANT
     Dosage: PATIENT IS TAKINF FOR 6 MONTHS
     Route: 048

REACTIONS (4)
  - Abdominal discomfort [Unknown]
  - Pollakiuria [Unknown]
  - Constipation [Unknown]
  - Frequent bowel movements [Unknown]
